FAERS Safety Report 6401638-2 (Version None)
Quarter: 2009Q4

REPORT INFORMATION
  Report Type: 
  Country: None (occurrence: None)
  Receive Date: 20091009
  Receipt Date: 20091009
  Transmission Date: 20100525
  Serious: Yes (Life-Threatening)
  Sender: FDA-Public Use
  Company Number: None

PATIENT
  Age: 53 Year
  Sex: Male

DRUGS (3)
  1. ENOXAPARIN SODIUM [Suspect]
     Indication: MYOCARDIAL INFARCTION
     Dosage: 42.5 MG IV
     Route: 042
     Dates: start: 20091002, end: 20091002
  2. PLAVIX [Suspect]
  3. ASPISOL [Concomitant]

REACTIONS (1)
  - CORONARY ARTERY THROMBOSIS [None]
